FAERS Safety Report 25843641 (Version 1)
Quarter: 2025Q3

REPORT INFORMATION
  Report Type: Spontaneous
  Country: US (occurrence: US)
  Receive Date: 20250924
  Receipt Date: 20250924
  Transmission Date: 20251020
  Serious: No
  Sender: ELI LILLY AND COMPANY
  Company Number: US-ELI_LILLY_AND_COMPANY-US202509013923

PATIENT
  Age: 82 Year
  Sex: Female

DRUGS (7)
  1. INSULIN LISPRO [Suspect]
     Active Substance: INSULIN LISPRO
     Indication: Diabetes mellitus
     Route: 065
  2. INSULIN LISPRO [Suspect]
     Active Substance: INSULIN LISPRO
     Indication: Diabetes mellitus
     Route: 065
  3. INSULIN LISPRO [Suspect]
     Active Substance: INSULIN LISPRO
     Route: 065
  4. INSULIN LISPRO [Suspect]
     Active Substance: INSULIN LISPRO
     Route: 065
  5. INSULIN LISPRO [Suspect]
     Active Substance: INSULIN LISPRO
     Route: 065
  6. INSULIN LISPRO [Suspect]
     Active Substance: INSULIN LISPRO
     Route: 065
  7. INSULIN LISPRO [Suspect]
     Active Substance: INSULIN LISPRO
     Route: 065

REACTIONS (5)
  - Hypoacusis [Unknown]
  - Blood glucose increased [Recovered/Resolved]
  - Injection site bruising [Not Recovered/Not Resolved]
  - Limb discomfort [Not Recovered/Not Resolved]
  - Mobility decreased [Unknown]

NARRATIVE: CASE EVENT DATE: 20250911
